FAERS Safety Report 17435331 (Version 1)
Quarter: 2020Q1

REPORT INFORMATION
  Report Type: Spontaneous
  Country: US (occurrence: US)
  Receive Date: 20200218
  Receipt Date: 20200218
  Transmission Date: 20200409
  Serious: Yes (Life-Threatening, Hospitalization)
  Sender: FDA-Public Use
  Company Number: None

PATIENT
  Age: 31 Month
  Sex: Male

DRUGS (8)
  1. CHILDRENS MULTIVITAMIN [Concomitant]
  2. BACLOFEN 10MG [Concomitant]
     Active Substance: BACLOFEN
  3. LORAZEPAM 2MG [Concomitant]
     Active Substance: LORAZEPAM
  4. EPIDIOLEX [Suspect]
     Active Substance: CANNABIDIOL
     Indication: EPILEPTIC ENCEPHALOPATHY
     Route: 048
     Dates: start: 20191215
  5. KEPPRA [Concomitant]
     Active Substance: LEVETIRACETAM
  6. VIMPAT [Concomitant]
     Active Substance: LACOSAMIDE
  7. DIAZEPAM 2MG [Concomitant]
     Active Substance: DIAZEPAM
  8. RANITIDINE SOLUTION [Concomitant]

REACTIONS (8)
  - Culture positive [None]
  - Seizure [None]
  - Infection [None]
  - Condition aggravated [None]
  - Moraxella infection [None]
  - Pyrexia [None]
  - Endotracheal intubation [None]
  - Vomiting [None]

NARRATIVE: CASE EVENT DATE: 20200212
